FAERS Safety Report 12432529 (Version 1)
Quarter: 2016Q2

REPORT INFORMATION
  Report Type: Spontaneous
  Country: US (occurrence: None)
  Receive Date: 20160602
  Receipt Date: 20160602
  Transmission Date: 20160815
  Serious: No
  Sender: FDA-Public Use
  Company Number: None

PATIENT
  Age: 68 Year
  Sex: Female
  Weight: 58.97 kg

DRUGS (9)
  1. VITAMIN B12 [Concomitant]
     Active Substance: CYANOCOBALAMIN
  2. ESTROGEN REPLACEMENT THERAPY [Concomitant]
  3. NIACIN. [Concomitant]
     Active Substance: NIACIN
  4. CALCIUM [Concomitant]
     Active Substance: CALCIUM
  5. UNISOM SLEEP GELS (DIPHENHYDRAMINE) [Concomitant]
  6. ZOLPIDEM [Suspect]
     Active Substance: ZOLPIDEM\ZOLPIDEM TARTRATE
     Indication: INSOMNIA
     Route: 048
     Dates: start: 20160519
  7. VITAMIN C [Concomitant]
     Active Substance: ASCORBIC ACID
  8. MELATONIN [Concomitant]
     Active Substance: MELATONIN
  9. LOVAZA [Concomitant]
     Active Substance: OMEGA-3-ACID ETHYL ESTERS

REACTIONS (1)
  - Drug ineffective [None]

NARRATIVE: CASE EVENT DATE: 20160404
